FAERS Safety Report 10035474 (Version 1)
Quarter: 2014Q1

REPORT INFORMATION
  Report Type: Spontaneous
  Country: JP (occurrence: None)
  Receive Date: 20140321
  Receipt Date: 20140321
  Transmission Date: 20141002
  Serious: Yes (Other)
  Sender: FDA-Public Use
  Company Number: 2014JP00210

PATIENT
  Sex: 0

DRUGS (2)
  1. CARBOPLATIN (CARBOPLATIN) INJECTION [Suspect]
     Indication: SMALL CELL LUNG CANCER
     Dosage: 5 MG.MIN/ML AREA UNDER THE CURVE OF 5 INTRAVENOUSLY ON DAY 1, EVERY 3 WEEKS FOR 4 TO 6 CYCLES
     Route: 042
  2. ETOPOSIDE [Suspect]
     Indication: SMALL CELL LUNG CANCER
     Dosage: ON DAYS 1 TO 3, EVERY 3 WEEKS FOR 4 TO 6 CYCLES
     Route: 042

REACTIONS (1)
  - Interstitial lung disease [None]
